FAERS Safety Report 16246590 (Version 1)
Quarter: 2019Q2

REPORT INFORMATION
  Report Type: Spontaneous
  Country: JP (occurrence: JP)
  Receive Date: 20190427
  Receipt Date: 20190427
  Transmission Date: 20190711
  Serious: Yes (Death)
  Sender: FDA-Public Use
  Company Number: JP-AMGEN-JPNSP2019065278

PATIENT

DRUGS (6)
  1. REGPARA [Suspect]
     Active Substance: CINACALCET HYDROCHLORIDE
     Indication: HYPERPARATHYROIDISM PRIMARY
     Dosage: 75 MILLIGRAM
     Route: 048
  2. EVOCALCET [Suspect]
     Active Substance: EVOCALCET
     Indication: HYPERPARATHYROIDISM PRIMARY
     Dosage: UNK
     Route: 048
  3. EVOCALCET [Suspect]
     Active Substance: EVOCALCET
     Indication: BLOOD PARATHYROID HORMONE INCREASED
     Dosage: UNK
     Route: 048
  4. REGPARA [Suspect]
     Active Substance: CINACALCET HYDROCHLORIDE
     Indication: HYPERCALCAEMIA
     Dosage: UNK
     Route: 048
  5. EVOCALCET [Suspect]
     Active Substance: EVOCALCET
     Indication: HYPERCALCAEMIA
     Dosage: UNK
     Route: 048
  6. REGPARA [Suspect]
     Active Substance: CINACALCET HYDROCHLORIDE
     Indication: BLOOD PARATHYROID HORMONE INCREASED
     Dosage: UNK
     Route: 048

REACTIONS (2)
  - Vomiting [Recovering/Resolving]
  - Death [Fatal]
